FAERS Safety Report 9326091 (Version 2)
Quarter: 2013Q3

REPORT INFORMATION
  Report Type: Spontaneous
  Country: IN (occurrence: IN)
  Receive Date: 20130604
  Receipt Date: 20130819
  Transmission Date: 20140515
  Serious: Yes (Other)
  Sender: FDA-Public Use
  Company Number: IN-SANOFI-AVENTIS-2013SA053985

PATIENT
  Age: 30 Year
  Sex: Male

DRUGS (1)
  1. PENTAZOCINE HYDROCHLORIDE [Suspect]
     Indication: ANALGESIC THERAPY
     Dosage: DRUG THERAPY - ONCE OR TWICE DAILY
     Route: 030

REACTIONS (10)
  - Fibromyalgia [Recovering/Resolving]
  - Drug dependence [Recovering/Resolving]
  - Drug abuser [Unknown]
  - Muscle tightness [Recovering/Resolving]
  - Muscle contracture [Recovering/Resolving]
  - Facial paresis [Recovering/Resolving]
  - Limb deformity [Recovering/Resolving]
  - Winged scapula [Recovering/Resolving]
  - Muscle atrophy [Recovering/Resolving]
  - Hypokinesia [Recovering/Resolving]
